FAERS Safety Report 6902849-X (Version None)
Quarter: 2010Q3

REPORT INFORMATION
  Report Type: 
  Country: None (occurrence: None)
  Receive Date: 20100803
  Receipt Date: 20081011
  Transmission Date: 20110219
  Serious: No
  Sender: FDA-Public Use
  Company Number: US-PFIZER INC-2008043009

PATIENT
  Sex: Male
  Weight: 84 kg

DRUGS (7)
  1. LYRICA [Suspect]
     Indication: NEURALGIA
     Route: 048
     Dates: start: 20080512
  2. LYRICA [Suspect]
     Indication: BRACHIAL PLEXOPATHY
  3. ELAVIL [Concomitant]
  4. LEXAPRO [Concomitant]
  5. KLONOPIN [Concomitant]
  6. HYDROCODONE BITARTRATE [Concomitant]
  7. TYLENOL [Concomitant]

REACTIONS (3)
  - COGNITIVE DISORDER [None]
  - DISTURBANCE IN ATTENTION [None]
  - MEMORY IMPAIRMENT [None]
